FAERS Safety Report 16737560 (Version 2)
Quarter: 2019Q3

REPORT INFORMATION
  Report Type: Report from Study
  Country: JP (occurrence: JP)
  Receive Date: 20190823
  Receipt Date: 20190909
  Transmission Date: 20191005
  Serious: Yes (Other)
  Sender: FDA-Public Use
  Company Number: JP-ALLERGAN-1934793US

PATIENT
  Sex: Male
  Weight: 55 kg

DRUGS (12)
  1. BOTULINUM TOXIN TYPE A - GENERAL (9060X) [Suspect]
     Active Substance: BOTULINUM TOXIN TYPE A
     Dosage: 60 UNITS, SINGLE
     Route: 030
     Dates: start: 20180717, end: 20180717
  2. BOTULINUM TOXIN TYPE A - GENERAL (9060X) [Suspect]
     Active Substance: BOTULINUM TOXIN TYPE A
     Dosage: 60 UNITS, SINGLE
     Route: 030
     Dates: start: 20180717, end: 20180717
  3. ZETIA [Concomitant]
     Active Substance: EZETIMIBE
     Dosage: 10 MG, QD
     Dates: start: 20181004
  4. LYRICA [Concomitant]
     Active Substance: PREGABALIN
     Dosage: 75 MG, BID
     Dates: start: 20181004
  5. AMLODIPINE [Concomitant]
     Active Substance: AMLODIPINE BESYLATE
     Dosage: 2.5 MG, QD
     Dates: start: 20181004
  6. BOTULINUM TOXIN TYPE A - GENERAL (9060X) [Suspect]
     Active Substance: BOTULINUM TOXIN TYPE A
     Dosage: 60 UNITS, SINGLE
     Route: 030
     Dates: start: 20180717, end: 20180717
  7. BOTULINUM TOXIN TYPE A - GENERAL (9060X) [Suspect]
     Active Substance: BOTULINUM TOXIN TYPE A
     Dosage: 60 UNITS, SINGLE
     Route: 030
     Dates: start: 20180717, end: 20180717
  8. BOTULINUM TOXIN TYPE A - GENERAL (9060X) [Suspect]
     Active Substance: BOTULINUM TOXIN TYPE A
     Indication: MUSCLE SPASMS
     Dosage: 60 UNITS, SINGLE
     Route: 030
     Dates: start: 20180717, end: 20180717
  9. GABALON [Concomitant]
     Active Substance: BACLOFEN
     Dosage: 10 MG, TID
     Dates: start: 20181004
  10. MASHININGAN [Concomitant]
     Active Substance: HERBALS
     Dosage: 2.5 G, TID
     Dates: start: 20181004
  11. LANSOPRAZOLE. [Concomitant]
     Active Substance: LANSOPRAZOLE
     Dosage: 15 MG, QD
     Dates: start: 20181004
  12. KETOPROFEN TAPE [Concomitant]
     Dosage: UNK
     Dates: start: 20181004

REACTIONS (3)
  - Internal haemorrhage [Recovered/Resolved]
  - Fall [Recovered/Resolved]
  - Contusion [Recovered/Resolved]

NARRATIVE: CASE EVENT DATE: 201810
